FAERS Safety Report 7918852-7 (Version None)
Quarter: 2011Q4

REPORT INFORMATION
  Report Type: 
  Country: None (occurrence: None)
  Receive Date: 20111116
  Receipt Date: 20111108
  Transmission Date: 20120403
  Serious: Yes (Disabling, Other)
  Sender: FDA-Public Use
  Company Number: DE-US-EMD SERONO, INC.-7088847

PATIENT
  Sex: Female
  Weight: 61 kg

DRUGS (1)
  1. REBIF [Suspect]
     Indication: RELAPSING-REMITTING MULTIPLE SCLEROSIS
     Route: 058
     Dates: start: 20080618, end: 20110921

REACTIONS (10)
  - WALKING DISABILITY [None]
  - GAMMA-GLUTAMYLTRANSFERASE INCREASED [None]
  - ALANINE AMINOTRANSFERASE INCREASED [None]
  - ASPARTATE AMINOTRANSFERASE INCREASED [None]
  - SYNCOPE [None]
  - BLOOD GLUCOSE INCREASED [None]
  - INJECTION SITE REACTION [None]
  - ABDOMINAL DISCOMFORT [None]
  - MOVEMENT DISORDER [None]
  - PYREXIA [None]
